FAERS Safety Report 9227464 (Version 1)
Quarter: 2013Q2

REPORT INFORMATION
  Report Type: Spontaneous
  Country: FR (occurrence: FR)
  Receive Date: 20130412
  Receipt Date: 20130412
  Transmission Date: 20140414
  Serious: Yes (Hospitalization)
  Sender: FDA-Public Use
  Company Number: FR-NOVOPROD-375102

PATIENT
  Age: 75 Year
  Sex: Male

DRUGS (17)
  1. NOVONORM [Suspect]
     Indication: PRODUCT USED FOR UNKNOWN INDICATION
     Dosage: 6 MG, QD (3+3)
     Route: 048
     Dates: start: 20130218, end: 20130312
  2. DALACINE /00166002/ [Suspect]
     Indication: PRODUCT USED FOR UNKNOWN INDICATION
     Dosage: 600 MG, TID
     Route: 048
  3. LANTUS [Concomitant]
  4. HYPERIUM [Concomitant]
  5. PREVISCAN                          /00261401/ [Concomitant]
  6. KARDEGIC [Concomitant]
  7. TAHOR [Concomitant]
  8. LOXEN [Concomitant]
  9. INIPOMP [Concomitant]
  10. LASILIX                            /00032601/ [Concomitant]
  11. ELIGARD [Concomitant]
  12. CASODEX [Concomitant]
  13. DUROGESIC [Concomitant]
  14. OXYNORM [Concomitant]
  15. PARACETAMOL [Concomitant]
  16. DUPHALAC                           /00163401/ [Concomitant]
  17. HYDROSOL POLYVITAMINE [Concomitant]

REACTIONS (2)
  - Petechiae [Recovered/Resolved]
  - Purpura [Recovered/Resolved]
